FAERS Safety Report 8356493-0 (Version None)
Quarter: 2012Q2

REPORT INFORMATION
  Report Type: 
  Country: None (occurrence: None)
  Receive Date: 20120511
  Receipt Date: 20120511
  Transmission Date: 20120825
  Serious: Yes (Hospitalization)
  Sender: FDA-Public Use
  Company Number: None

PATIENT
  Sex: Male
  Weight: 75.2971 kg

DRUGS (4)
  1. VINBLASTINE SULFATE [Suspect]
     Dosage: IV EVERY 2 WEEKS WITH NEULASTA X 3 CYCLES
     Route: 042
     Dates: start: 20120110, end: 20120217
  2. METHOTREXATE [Suspect]
     Dosage: IV EVERY 2 WEEKS WITH NEULASTA X 3 CYCLES
     Route: 042
     Dates: start: 20120110, end: 20120217
  3. CISPLATIN [Suspect]
     Dosage: IV EVERY 2 WEEKS WITH NEULASTA X 3 CYCLES
     Route: 042
     Dates: start: 20120110, end: 20120217
  4. DOXORUBICIN HCL [Suspect]
     Dosage: IV EVERY 2 WEEKS WITH NEULASTA X 3 CYCLES
     Route: 042
     Dates: start: 20120110, end: 20120217

REACTIONS (5)
  - SUPRAVENTRICULAR TACHYCARDIA [None]
  - INTESTINAL FISTULA [None]
  - ATRIAL FIBRILLATION [None]
  - POSTOPERATIVE WOUND INFECTION [None]
  - WOUND DEHISCENCE [None]
